FAERS Safety Report 25761380 (Version 3)
Quarter: 2025Q4

REPORT INFORMATION
  Report Type: Spontaneous
  Country: US (occurrence: US)
  Receive Date: 20250904
  Receipt Date: 20251028
  Transmission Date: 20260119
  Serious: No
  Sender: PFIZER
  Company Number: US-PFIZER INC-202500172572

PATIENT
  Age: 8 Year
  Sex: Female
  Weight: 15 kg

DRUGS (1)
  1. GENOTROPIN [Suspect]
     Active Substance: SOMATROPIN
     Indication: Growth hormone deficiency
     Dosage: 0.4 MG, DAILY
     Route: 058
     Dates: start: 202408, end: 202509

REACTIONS (3)
  - Device leakage [Unknown]
  - Wrong technique in device usage process [Unknown]
  - Drug dose omission by device [Unknown]

NARRATIVE: CASE EVENT DATE: 20250903
